FAERS Safety Report 11214762 (Version 1)
Quarter: 2015Q2

REPORT INFORMATION
  Report Type: Spontaneous
  Country: US (occurrence: None)
  Receive Date: 20150622
  Receipt Date: 20150622
  Transmission Date: 20150821
  Serious: Yes (Other)
  Sender: FDA-Public Use
  Company Number: None

PATIENT
  Age: 57 Year
  Sex: Male

DRUGS (1)
  1. ACTHAR [Suspect]
     Active Substance: CORTICOTROPIN
     Indication: NEPHROTIC SYNDROME
     Dosage: 80 UNITS  THREE TIMES PER WEEK SUBCUTANEOUS
     Route: 058
     Dates: start: 20141218

REACTIONS (3)
  - Ageusia [None]
  - Weight decreased [None]
  - Dry mouth [None]

NARRATIVE: CASE EVENT DATE: 20150609
